FAERS Safety Report 4583624-0 (Version None)
Quarter: 2005Q1

REPORT INFORMATION
  Report Type: 
  Country: None (occurrence: None)
  Receive Date: 20050211
  Receipt Date: 20050131
  Transmission Date: 20050727
  Serious: Yes (Hospitalization, Other)
  Sender: FDA-Public Use
  Company Number: HQWYE235704NOV04

PATIENT
  Age: 37 Year
  Sex: Female
  Weight: 56.75 kg

DRUGS (12)
  1. RAPAMUNE [Suspect]
     Indication: PROPHYLAXIS AGAINST TRANSPLANT REJECTION
     Dosage: AT TIME OF EVENT 0 MG INITIALLY PRESCRIBED 5 MG, ORAL
     Route: 048
     Dates: start: 20040112, end: 20040203
  2. BACTRIM [Concomitant]
  3. CALCIUM CARBONATE (CALCIUM CARBONATE) [Concomitant]
  4. CLONIDINE [Concomitant]
  5. PAXIL [Concomitant]
  6. PREDNISONE TAB [Concomitant]
  7. PROCRIT (ERYTHROPOIETIN) [Concomitant]
  8. PROGRAF [Concomitant]
  9. RESTORIL [Concomitant]
  10. ROCALTROL [Concomitant]
  11. SODIUM BICARBONATE IN PLASTIC CONTAINER [Concomitant]
  12. TOPROL-XL [Concomitant]

REACTIONS (6)
  - ABDOMINAL PAIN LOWER [None]
  - DIALYSIS [None]
  - GRAFT LOSS [None]
  - HAEMATURIA [None]
  - POST PROCEDURAL COMPLICATION [None]
  - TRANSPLANT REJECTION [None]
